FAERS Safety Report 6146423-4 (Version None)
Quarter: 2009Q2

REPORT INFORMATION
  Report Type: 
  Country: None (occurrence: None)
  Receive Date: 20090403
  Receipt Date: 20090403
  Transmission Date: 20091009
  Serious: No
  Sender: FDA-Public Use
  Company Number: None

PATIENT
  Age: 65 Year
  Sex: Female
  Weight: 58.9676 kg

DRUGS (2)
  1. ADVAIR DISKUS 100/50 [Suspect]
     Indication: ASTHMA
     Dosage: 1 PUFF EVERY 12 HRS INHALE
     Route: 055
     Dates: start: 20081201
  2. ADVAIR DISKUS 100/50 [Suspect]
     Indication: CHRONIC OBSTRUCTIVE PULMONARY DISEASE
     Dosage: 1 PUFF EVERY 12 HRS INHALE
     Route: 055
     Dates: start: 20081201

REACTIONS (2)
  - MYALGIA [None]
  - WEIGHT INCREASED [None]
